FAERS Safety Report 4378136-3 (Version None)
Quarter: 2004Q2

REPORT INFORMATION
  Report Type: 
  Country: None (occurrence: None)
  Receive Date: 20040616
  Receipt Date: 20040610
  Transmission Date: 20050107
  Serious: Yes (Hospitalization)
  Sender: FDA-Public Use
  Company Number: US-BRISTOL-MYERS SQUIBB COMPANY-12611331

PATIENT
  Age: 61 Year
  Sex: Male
  Weight: 125 kg

DRUGS (3)
  1. CARBOPLATIN [Suspect]
     Indication: NON-SMALL CELL LUNG CANCER
     Dosage: NEXT CYCLE: 22AUG01 @ 350 MG
     Route: 042
     Dates: start: 20010731, end: 20010731
  2. GEMZAR [Suspect]
     Indication: NON-SMALL CELL LUNG CANCER
     Dosage: DAY 8 HELD CYCLE 2: 22AUG01 @ 2000 MG
     Route: 042
     Dates: start: 20010731, end: 20010731
  3. COUMADIN [Concomitant]
     Indication: PULMONARY EMBOLISM

REACTIONS (4)
  - OEDEMA PERIPHERAL [None]
  - PULMONARY EMBOLISM [None]
  - SCROTAL SWELLING [None]
  - THROMBOPHLEBITIS [None]
